FAERS Safety Report 25629895 (Version 1)
Quarter: 2025Q3

REPORT INFORMATION
  Report Type: Spontaneous
  Country: CN (occurrence: CN)
  Receive Date: 20250731
  Receipt Date: 20250731
  Transmission Date: 20251020
  Serious: Yes (Other)
  Sender: BEIGENE
  Company Number: CN-BEIGENE-BGN-2025-012380

PATIENT
  Age: 69 Year
  Weight: 47 kg

DRUGS (30)
  1. TISLELIZUMAB [Suspect]
     Active Substance: TISLELIZUMAB
     Indication: Lung neoplasm malignant
  2. TISLELIZUMAB [Suspect]
     Active Substance: TISLELIZUMAB
     Route: 041
  3. TISLELIZUMAB [Suspect]
     Active Substance: TISLELIZUMAB
     Route: 041
  4. TISLELIZUMAB [Suspect]
     Active Substance: TISLELIZUMAB
  5. TISLELIZUMAB [Suspect]
     Active Substance: TISLELIZUMAB
  6. TISLELIZUMAB [Suspect]
     Active Substance: TISLELIZUMAB
     Route: 041
  7. TISLELIZUMAB [Suspect]
     Active Substance: TISLELIZUMAB
  8. TISLELIZUMAB [Suspect]
     Active Substance: TISLELIZUMAB
     Route: 041
  9. TISLELIZUMAB [Suspect]
     Active Substance: TISLELIZUMAB
  10. TISLELIZUMAB [Suspect]
     Active Substance: TISLELIZUMAB
  11. TISLELIZUMAB [Suspect]
     Active Substance: TISLELIZUMAB
     Route: 041
  12. TISLELIZUMAB [Suspect]
     Active Substance: TISLELIZUMAB
     Route: 041
  13. TISLELIZUMAB [Suspect]
     Active Substance: TISLELIZUMAB
     Route: 041
  14. TISLELIZUMAB [Suspect]
     Active Substance: TISLELIZUMAB
     Route: 041
  15. TISLELIZUMAB [Suspect]
     Active Substance: TISLELIZUMAB
  16. TISLELIZUMAB [Suspect]
     Active Substance: TISLELIZUMAB
  17. TISLELIZUMAB [Suspect]
     Active Substance: TISLELIZUMAB
     Route: 041
  18. TISLELIZUMAB [Suspect]
     Active Substance: TISLELIZUMAB
     Route: 041
  19. TISLELIZUMAB [Suspect]
     Active Substance: TISLELIZUMAB
  20. TISLELIZUMAB [Suspect]
     Active Substance: TISLELIZUMAB
  21. TISLELIZUMAB [Suspect]
     Active Substance: TISLELIZUMAB
     Route: 041
  22. TISLELIZUMAB [Suspect]
     Active Substance: TISLELIZUMAB
     Route: 041
  23. TISLELIZUMAB [Suspect]
     Active Substance: TISLELIZUMAB
  24. TISLELIZUMAB [Suspect]
     Active Substance: TISLELIZUMAB
  25. TISLELIZUMAB [Suspect]
     Active Substance: TISLELIZUMAB
  26. TISLELIZUMAB [Suspect]
     Active Substance: TISLELIZUMAB
  27. TISLELIZUMAB [Suspect]
     Active Substance: TISLELIZUMAB
     Route: 041
  28. TISLELIZUMAB [Suspect]
     Active Substance: TISLELIZUMAB
     Route: 041
  29. CATEQUENTINIB DIHYDROCHLORIDE [Suspect]
     Active Substance: CATEQUENTINIB DIHYDROCHLORIDE
     Indication: Lung neoplasm malignant
     Dosage: 12 MILLIGRAM, QD
     Route: 048
  30. CATEQUENTINIB DIHYDROCHLORIDE [Suspect]
     Active Substance: CATEQUENTINIB DIHYDROCHLORIDE
     Dosage: 12 MILLIGRAM, QD

REACTIONS (6)
  - Myocardial necrosis marker increased [Unknown]
  - Pneumonia [Recovering/Resolving]
  - Hypersensitivity [Recovering/Resolving]
  - Chills [Recovering/Resolving]
  - Chest discomfort [Recovering/Resolving]
  - Oxygen saturation decreased [Recovering/Resolving]
